FAERS Safety Report 9143689 (Version 5)
Quarter: 2014Q3

REPORT INFORMATION
  Report Type: Report from Study
  Country: KR (occurrence: KR)
  Receive Date: 20130306
  Receipt Date: 20140821
  Transmission Date: 20150326
  Serious: Yes (Death, Other)
  Sender: FDA-Public Use
  Company Number: KR-009507513-1303KOR002123

PATIENT
  Age: 33 Year
  Sex: Male
  Weight: 82.7 kg

DRUGS (8)
  1. ASENAPINE MALEATE-SCHIZOPHRENIA [Suspect]
     Active Substance: ASENAPINE MALEATE
     Indication: SCHIZOPHRENIA
     Dosage: 10 MG, 1T BID
     Route: 060
     Dates: start: 20120702, end: 20130225
  2. BENZTROPINE MESYLATE. [Concomitant]
     Active Substance: BENZTROPINE MESYLATE
     Dosage: 1 MG,QD
     Route: 048
     Dates: start: 20121024, end: 20130225
  3. ASENAPINE MALEATE-SCHIZOPHRENIA [Suspect]
     Active Substance: ASENAPINE MALEATE
     Dosage: UNK
     Dates: start: 20120521, end: 20120702
  4. LORAZEPAM. [Concomitant]
     Active Substance: LORAZEPAM
     Indication: INSOMNIA
     Dosage: 0.125-1MG
     Route: 048
     Dates: start: 20120910, end: 20121230
  5. MAGMIL [Concomitant]
     Active Substance: MAGNESIUM HYDROXIDE
     Indication: CONSTIPATION
     Dosage: 1000 MG, QD
     Route: 048
     Dates: start: 20130110, end: 20130224
  6. DOXYLAMINE SUCCINATE [Concomitant]
     Active Substance: DOXYLAMINE SUCCINATE
     Indication: INSOMNIA
     Dosage: 50 MG, QD
     Route: 048
     Dates: start: 20121226, end: 20121230
  7. LORAZEPAM. [Concomitant]
     Active Substance: LORAZEPAM
     Indication: EXTRAPYRAMIDAL DISORDER
     Dosage: 2 MG,QD
     Route: 048
     Dates: start: 20130109, end: 20130225
  8. BENZTROPINE MESYLATE. [Concomitant]
     Active Substance: BENZTROPINE MESYLATE
     Indication: EXTRAPYRAMIDAL DISORDER
     Dosage: 2 MG, QD
     Route: 048
     Dates: start: 20120718, end: 20121023

REACTIONS (2)
  - Completed suicide [Fatal]
  - Depressed mood [Fatal]

NARRATIVE: CASE EVENT DATE: 20121004
